FAERS Safety Report 9121011 (Version 1)
Quarter: 2013Q1

REPORT INFORMATION
  Report Type: Spontaneous
  Country: US (occurrence: US)
  Receive Date: 20130226
  Receipt Date: 20130226
  Transmission Date: 20140127
  Serious: No
  Sender: FDA-Public Use
  Company Number: US-MYLANLABS-2012S1022829

PATIENT
  Age: 51 Year
  Sex: Female
  Weight: 68.04 kg

DRUGS (4)
  1. HYDROCHLOROTHIAZIDE CAPSULES [Suspect]
     Indication: HYPERTENSION
     Route: 048
     Dates: start: 20120822, end: 20120910
  2. AMBIEN [Concomitant]
  3. SYNTHROID [Concomitant]
  4. CLONAZEPAM [Concomitant]

REACTIONS (1)
  - Dysgeusia [Recovered/Resolved]
